FAERS Safety Report 20833444 (Version 4)
Quarter: 2023Q2

REPORT INFORMATION
  Report Type: Spontaneous
  Country: US (occurrence: US)
  Receive Date: 20220516
  Receipt Date: 20230601
  Transmission Date: 20230722
  Serious: No
  Sender: FDA-Public Use
  Company Number: US-PFIZER INC-202200650597

PATIENT
  Age: 61 Year
  Sex: Male

DRUGS (1)
  1. XELJANZ [Suspect]
     Active Substance: TOFACITINIB CITRATE
     Indication: Psoriatic arthropathy
     Dosage: 5 MG

REACTIONS (6)
  - Headache [Recovering/Resolving]
  - Fatigue [Unknown]
  - Arthritis [Not Recovered/Not Resolved]
  - Nasopharyngitis [Unknown]
  - Dehydration [Unknown]
  - Off label use [Unknown]
